FAERS Safety Report 12988645 (Version 2)
Quarter: 2016Q4

REPORT INFORMATION
  Report Type: Spontaneous
  Country: US (occurrence: US)
  Receive Date: 20161130
  Receipt Date: 20161218
  Transmission Date: 20170207
  Serious: No
  Sender: FDA-Public Use
  Company Number: US-SHIRE-US201618182

PATIENT
  Age: 16 Year
  Sex: Male
  Weight: 88.44 kg

DRUGS (1)
  1. VYVANSE [Suspect]
     Active Substance: LISDEXAMFETAMINE DIMESYLATE
     Indication: ATTENTION DEFICIT/HYPERACTIVITY DISORDER
     Dosage: 80 MG, 1X/DAY:QD
     Route: 048

REACTIONS (6)
  - Decreased appetite [Recovered/Resolved]
  - Product quality issue [Unknown]
  - Prescribed overdose [Not Recovered/Not Resolved]
  - Eating disorder [Not Recovered/Not Resolved]
  - Psychomotor hyperactivity [Unknown]
  - Disturbance in attention [Not Recovered/Not Resolved]

NARRATIVE: CASE EVENT DATE: 201611
